FAERS Safety Report 10513736 (Version 2)
Quarter: 2014Q4

REPORT INFORMATION
  Report Type: Spontaneous
  Country: AU (occurrence: AU)
  Receive Date: 20141013
  Receipt Date: 20141013
  Transmission Date: 20150528
  Serious: Yes (Other)
  Sender: FDA-Public Use
  Company Number: AU-BAYER-2014-057347

PATIENT
  Sex: Female

DRUGS (1)
  1. CANESTEN CLOTRIMAZOLE THRUSH TREATMENT [Suspect]
     Active Substance: CLOTRIMAZOLE\HYDROCORTISONE
     Indication: CANDIDA INFECTION
     Dosage: ONCE
     Route: 067
     Dates: start: 20140411

REACTIONS (5)
  - Maternal exposure during pregnancy [None]
  - Breech presentation [None]
  - Vaginal discharge [Recovered/Resolved]
  - Burning sensation [Recovered/Resolved]
  - Medical device discomfort [None]
